FAERS Safety Report 12471468 (Version 1)
Quarter: 2016Q2

REPORT INFORMATION
  Report Type: Report from Study
  Country: JP (occurrence: JP)
  Receive Date: 20160616
  Receipt Date: 20160616
  Transmission Date: 20160815
  Serious: Yes (Other)
  Sender: FDA-Public Use
  Company Number: JP-ASTELLAS-2008JP005121

PATIENT
  Age: 34 Year
  Sex: Male

DRUGS (41)
  1. PREDNISOLONE. [Suspect]
     Active Substance: PREDNISOLONE
     Route: 048
     Dates: start: 20080913, end: 20081017
  2. HOCHUUEKKITOU [Concomitant]
     Active Substance: HERBALS
     Indication: FATIGUE
     Route: 048
     Dates: start: 20081017, end: 20120727
  3. PREDNISOLONE. [Suspect]
     Active Substance: PREDNISOLONE
     Route: 048
     Dates: start: 20080110, end: 20080912
  4. TAKEPRON [Concomitant]
     Active Substance: LANSOPRAZOLE
     Indication: PROPHYLAXIS
     Route: 048
  5. PL GRAN. [Concomitant]
     Active Substance: UNSPECIFIED INGREDIENT
     Indication: PHARYNGITIS
     Route: 048
     Dates: start: 200807
  6. PL GRAN. [Concomitant]
     Active Substance: UNSPECIFIED INGREDIENT
     Indication: NASOPHARYNGITIS
     Route: 048
     Dates: start: 200902
  7. TACROLIMUS. [Suspect]
     Active Substance: TACROLIMUS
     Indication: LUPUS NEPHRITIS
     Route: 048
     Dates: start: 20070423, end: 20080312
  8. BAYASPIRIN [Concomitant]
     Active Substance: ASPIRIN
     Indication: PROPHYLAXIS
     Route: 048
     Dates: start: 20071108
  9. ALLELOCK [Concomitant]
     Active Substance: OLOPATADINE HYDROCHLORIDE
     Indication: RHINITIS ALLERGIC
     Route: 048
  10. PL GRAN. [Concomitant]
     Active Substance: UNSPECIFIED INGREDIENT
     Indication: UPPER RESPIRATORY TRACT INFLAMMATION
     Route: 048
     Dates: start: 200810
  11. TACHIONIN [Concomitant]
     Indication: CATARACT
     Dosage: UNK UNK, UNKNOWN FREQ.
     Route: 047
  12. PREDNISOLONE. [Suspect]
     Active Substance: PREDNISOLONE
     Dosage: 30 MG/15 MG, EVERY OTHER DAY
     Route: 048
     Dates: start: 20070809, end: 20070905
  13. PREDNISOLONE. [Suspect]
     Active Substance: PREDNISOLONE
     Route: 048
     Dates: start: 20140329, end: 20140606
  14. PREDNISOLONE. [Suspect]
     Active Substance: PREDNISOLONE
     Route: 048
     Dates: start: 20140607, end: 20150227
  15. MUCOSTA [Concomitant]
     Active Substance: REBAMIPIDE
     Indication: PROPHYLAXIS
     Route: 048
     Dates: end: 20080213
  16. SHOUSEIRYUUTOU [Concomitant]
     Indication: RHINITIS ALLERGIC
     Route: 048
     Dates: start: 20080213, end: 20080418
  17. MUCOSOLVAN [Concomitant]
     Active Substance: AMBROXOL HYDROCHLORIDE
     Indication: NASOPHARYNGITIS
     Route: 065
     Dates: start: 200906
  18. PREDNISOLONE. [Suspect]
     Active Substance: PREDNISOLONE
     Dosage: 30 MG/20 MG, EVERY OTHER DAY
     Route: 048
     Dates: start: 20070703, end: 20070808
  19. PREDNISOLONE. [Suspect]
     Active Substance: PREDNISOLONE
     Route: 048
     Dates: start: 20081018, end: 20130531
  20. PREDNISOLONE. [Suspect]
     Active Substance: PREDNISOLONE
     Route: 048
     Dates: start: 20130601, end: 20131115
  21. PREDNISOLONE. [Suspect]
     Active Substance: PREDNISOLONE
     Dosage: 20MG/15MG EVERY OTHER DAY
     Route: 048
     Dates: start: 20140118, end: 20140328
  22. WARFARIN                           /00014803/ [Concomitant]
     Active Substance: WARFARIN
     Indication: PROPHYLAXIS
     Route: 048
     Dates: end: 20071108
  23. SAIREI-TO [Concomitant]
     Active Substance: UNSPECIFIED INGREDIENT
     Indication: DECREASED APPETITE
     Route: 048
     Dates: start: 20071003, end: 20081017
  24. MEDICON [Concomitant]
     Active Substance: DEXTROMETHORPHAN HYDROBROMIDE
     Indication: UPPER RESPIRATORY TRACT INFLAMMATION
     Route: 065
     Dates: start: 200902
  25. TACROLIMUS. [Suspect]
     Active Substance: TACROLIMUS
     Route: 048
     Dates: start: 20080313
  26. PREDNISOLONE. [Suspect]
     Active Substance: PREDNISOLONE
     Dosage: 30 MG/10 MG, EVERY OTHER DAY
     Route: 048
     Dates: start: 20070906, end: 20071107
  27. PREDNISOLONE. [Suspect]
     Active Substance: PREDNISOLONE
     Dosage: 30 MG/5 MG, EVERY OTHER DAY
     Route: 048
     Dates: start: 20071108, end: 20080109
  28. PREDNISOLONE. [Suspect]
     Active Substance: PREDNISOLONE
     Dosage: 15MG/10MG, EVERY OTHER DAY
     Route: 048
     Dates: start: 20150228
  29. BAKTAR [Concomitant]
     Active Substance: SULFAMETHOXAZOLE\TRIMETHOPRIM
     Indication: PROPHYLAXIS
     Route: 048
     Dates: end: 20071108
  30. KEISHIBUKURYOUGAN [Concomitant]
     Indication: FEELING COLD
     Route: 048
     Dates: start: 20071003, end: 20120727
  31. ASTOMIN [Concomitant]
     Active Substance: DIMEMORFAN
     Indication: NASOPHARYNGITIS
     Route: 065
     Dates: start: 200906
  32. PREDNISOLONE. [Suspect]
     Active Substance: PREDNISOLONE
     Dosage: 30 MG/25 MG, EVERY OTHER DAY
     Route: 048
     Dates: start: 20070529, end: 20070702
  33. PREDNISOLONE. [Suspect]
     Active Substance: PREDNISOLONE
     Route: 048
     Dates: start: 20131116, end: 20140117
  34. BONALON [Concomitant]
     Active Substance: ALENDRONATE SODIUM
     Indication: PROPHYLAXIS
     Route: 048
     Dates: start: 20071107, end: 20110422
  35. BENET [Concomitant]
     Active Substance: RISEDRONATE SODIUM
     Indication: PROPHYLAXIS
     Route: 048
     Dates: end: 20071108
  36. ALLELOCK [Concomitant]
     Active Substance: OLOPATADINE HYDROCHLORIDE
     Indication: URTICARIA
     Route: 048
     Dates: start: 20080811, end: 20090410
  37. PL GRAN. [Concomitant]
     Active Substance: UNSPECIFIED INGREDIENT
     Route: 048
     Dates: start: 200906
  38. MEDICON [Concomitant]
     Active Substance: DEXTROMETHORPHAN HYDROBROMIDE
     Indication: PHARYNGITIS
     Route: 065
     Dates: start: 200810
  39. PREDNISOLONE. [Suspect]
     Active Substance: PREDNISOLONE
     Indication: LUPUS NEPHRITIS
     Route: 048
     Dates: end: 20070528
  40. MICARDIS [Concomitant]
     Active Substance: TELMISARTAN
     Indication: HYPERTENSION
     Route: 048
  41. LOCHOL [Concomitant]
     Active Substance: FLUVASTATIN SODIUM
     Indication: HYPERLIPIDAEMIA
     Route: 048
     Dates: end: 20080312

REACTIONS (9)
  - Headache [Recovered/Resolved]
  - Tremor [Recovering/Resolving]
  - Upper respiratory tract inflammation [Recovering/Resolving]
  - Cataract [Not Recovered/Not Resolved]
  - Rhinitis allergic [Recovered/Resolved]
  - Dermal cyst [Recovering/Resolving]
  - Pharyngitis [Recovering/Resolving]
  - Nasopharyngitis [Recovering/Resolving]
  - Urticaria [Recovering/Resolving]

NARRATIVE: CASE EVENT DATE: 200802
